FAERS Safety Report 5143403-2 (Version None)
Quarter: 2006Q4

REPORT INFORMATION
  Report Type: 
  Country: None (occurrence: None)
  Receive Date: 20061103
  Receipt Date: 20050617
  Transmission Date: 20070319
  Serious: Yes (Hospitalization)
  Sender: FDA-Public Use
  Company Number: 2005CG01128

PATIENT
  Age: 70 Year
  Sex: Male
  Weight: 103 kg

DRUGS (8)
  1. IRESSA [Suspect]
     Indication: BRONCHIAL CARCINOMA
     Route: 048
  2. OMEPRAZOLE [Concomitant]
     Route: 048
  3. LASIX [Concomitant]
  4. TRIATEC [Concomitant]
     Route: 048
  5. EPREX [Concomitant]
  6. SOPROL [Concomitant]
     Route: 048
  7. NITRODERM [Concomitant]
  8. PLAVIX [Concomitant]

REACTIONS (3)
  - DISEASE PROGRESSION [None]
  - LEUKOCYTOCLASTIC VASCULITIS [None]
  - PURPURA [None]
